FAERS Safety Report 23358682 (Version 1)
Quarter: 2024Q1

REPORT INFORMATION
  Report Type: Spontaneous
  Country: CN (occurrence: CN)
  Receive Date: 20240102
  Receipt Date: 20240102
  Transmission Date: 20240410
  Serious: Yes (Hospitalization, Disabling)
  Sender: FDA-Public Use
  Company Number: CN-BAYER-2023A184483

PATIENT
  Age: 74 Year
  Sex: Male
  Weight: 62.5 kg

DRUGS (1)
  1. STIVARGA [Suspect]
     Active Substance: REGORAFENIB
     Indication: Rectal cancer
     Dosage: 120 MG, QD
     Route: 048
     Dates: start: 20230401, end: 20231212

REACTIONS (3)
  - Renal failure [Recovering/Resolving]
  - Proteinuria [Recovering/Resolving]
  - Off label use [None]

NARRATIVE: CASE EVENT DATE: 20230401
